FAERS Safety Report 6993345-2 (Version None)
Quarter: 2010Q3

REPORT INFORMATION
  Report Type: 
  Country: None (occurrence: None)
  Receive Date: 20100917
  Receipt Date: 20100907
  Transmission Date: 20110219
  Serious: Yes (Other)
  Sender: FDA-Public Use
  Company Number: NO-NAPPMUNDI-GBR-2010-0007020

PATIENT
  Age: 80 Year
  Sex: Male

DRUGS (2)
  1. NORSPAN [Suspect]
     Indication: PAIN
     Route: 062
  2. ACETAMINOPHEN [Concomitant]

REACTIONS (3)
  - ASTHENOPIA [None]
  - SKIN REACTION [None]
  - SOMNOLENCE [None]
